FAERS Safety Report 5564240-0 (Version None)
Quarter: 2007Q4

REPORT INFORMATION
  Report Type: 
  Country: None (occurrence: None)
  Receive Date: 20071212
  Receipt Date: 20071130
  Transmission Date: 20080405
  Serious: Yes (Life-Threatening, Hospitalization, Disabling, Other)
  Sender: FDA-Public Use
  Company Number: TUK2007A00139

PATIENT
  Age: 74 Year
  Sex: Female

DRUGS (7)
  1. ACTOS [Suspect]
     Indication: TYPE 2 DIABETES MELLITUS
     Dosage: 15 MG ORAL
     Route: 048
     Dates: end: 20070905
  2. AMIODARONE HCL [Concomitant]
  3. ATORVASTATIN CALCIUM [Concomitant]
  4. CO-AMOXICLAV (AMOXICILLIN,  CLAVULANATE POTASSIUM) [Concomitant]
  5. DIGOXIN [Concomitant]
  6. LEVOTHYROXINE SODIUM [Concomitant]
  7. OMEPRAZOLE [Concomitant]

REACTIONS (4)
  - CEREBROVASCULAR ACCIDENT [None]
  - GAIT DISTURBANCE [None]
  - HEPATITIS ACUTE [None]
  - MIXED RECEPTIVE-EXPRESSIVE LANGUAGE DISORDER [None]
